FAERS Safety Report 7825000-0 (Version None)
Quarter: 2011Q4

REPORT INFORMATION
  Report Type: 
  Country: None (occurrence: None)
  Receive Date: 20111019
  Receipt Date: 20111014
  Transmission Date: 20120403
  Serious: Yes (Hospitalization, Disabling, Other)
  Sender: FDA-Public Use
  Company Number: US-MERCK-1106USA02918

PATIENT
  Age: 85 Year
  Sex: Female
  Weight: 49 kg

DRUGS (10)
  1. SIMVASTATIN [Concomitant]
     Indication: BLOOD CHOLESTEROL
     Route: 065
     Dates: start: 19930823, end: 20071105
  2. PREMARIN [Concomitant]
     Indication: HORMONE THERAPY
     Route: 067
     Dates: start: 20000223, end: 20080806
  3. SYNTHROID [Concomitant]
     Route: 048
  4. FOSAMAX [Suspect]
     Route: 048
     Dates: start: 20020807, end: 20090527
  5. FOSAMAX [Suspect]
     Indication: OSTEOPOROSIS
     Route: 048
     Dates: start: 20020807, end: 20090527
  6. FOSAMAX [Suspect]
     Route: 048
     Dates: start: 20090210, end: 20090924
  7. HYDROCHLOROTHIAZIDE [Concomitant]
     Indication: HYPERTENSION
     Route: 048
     Dates: start: 20090406, end: 20110525
  8. ZOCOR [Concomitant]
     Route: 048
  9. FOSAMAX [Suspect]
     Route: 048
     Dates: start: 20090210, end: 20090924
  10. ALENDRONATE SODIUM [Suspect]
     Indication: OSTEOPOROSIS
     Route: 048
     Dates: start: 20080430, end: 20090527

REACTIONS (53)
  - DIARRHOEA [None]
  - DENTAL CARIES [None]
  - PERIODONTAL DISEASE [None]
  - OSTEOPENIA [None]
  - LEFT VENTRICULAR HYPERTROPHY [None]
  - IMPACTED FRACTURE [None]
  - TOOTH DISORDER [None]
  - SYNCOPE [None]
  - HERPES ZOSTER [None]
  - PALPITATIONS [None]
  - CARDIAC MURMUR [None]
  - CHONDROCALCINOSIS [None]
  - PUBIS FRACTURE [None]
  - CAROTID ARTERY DISEASE [None]
  - CEREBRAL ISCHAEMIA [None]
  - FALL [None]
  - ESCHERICHIA TEST POSITIVE [None]
  - DYSPNOEA EXERTIONAL [None]
  - DEHYDRATION [None]
  - CATARACT [None]
  - BLADDER PROLAPSE [None]
  - DYSPNOEA [None]
  - CHEST PAIN [None]
  - OSTEOARTHRITIS [None]
  - HYPERHIDROSIS [None]
  - EMPHYSEMA [None]
  - LABORATORY TEST ABNORMAL [None]
  - BONE CYST [None]
  - SLEEP DISORDER [None]
  - FRACTURED SACRUM [None]
  - ADVERSE EVENT [None]
  - WHITE BLOOD CELL COUNT INCREASED [None]
  - TEMPOROMANDIBULAR JOINT SYNDROME [None]
  - RHEUMATOID ARTHRITIS [None]
  - OSTEONECROSIS OF JAW [None]
  - MUSCULOSKELETAL DISORDER [None]
  - SCOLIOSIS [None]
  - HYPOKALAEMIA [None]
  - GINGIVAL BLEEDING [None]
  - COLITIS [None]
  - CEREBRAL DISORDER [None]
  - SPONDYLOLISTHESIS [None]
  - APHTHOUS STOMATITIS [None]
  - ADRENAL SUPPRESSION [None]
  - INTERVERTEBRAL DISC DEGENERATION [None]
  - ORAL DISORDER [None]
  - RESTLESS LEGS SYNDROME [None]
  - OEDEMA PERIPHERAL [None]
  - CARDIAC DISORDER [None]
  - WRIST FRACTURE [None]
  - ROTATOR CUFF SYNDROME [None]
  - HAEMATOMA [None]
  - GINGIVAL DISORDER [None]
